FAERS Safety Report 9304843 (Version 1)
Quarter: 2013Q2

REPORT INFORMATION
  Report Type: Report from Study
  Country: ES (occurrence: ES)
  Receive Date: 20130523
  Receipt Date: 20130523
  Transmission Date: 20140414
  Serious: Yes (Hospitalization)
  Sender: FDA-Public Use
  Company Number: ES-ROCHE-1225870

PATIENT
  Age: 52 Year
  Sex: Female

DRUGS (7)
  1. MYCOPHENOLATE MOFETIL [Suspect]
     Indication: RENAL TRANSPLANT
     Route: 065
  2. METHYLPREDNISOLONE [Suspect]
     Indication: RENAL TRANSPLANT
     Route: 065
  3. TACROLIMUS [Suspect]
     Indication: RENAL TRANSPLANT
     Route: 065
  4. BASILIXIMAB [Suspect]
     Indication: RENAL TRANSPLANT
     Route: 065
  5. CEFAZOLIN [Concomitant]
     Indication: PROPHYLAXIS
  6. GANCYKLOVIR [Concomitant]
     Indication: PROPHYLAXIS
  7. PREDNISONE [Concomitant]

REACTIONS (1)
  - Transplant rejection [Recovering/Resolving]
